FAERS Safety Report 9700767 (Version 1)
Quarter: 2013Q4

REPORT INFORMATION
  Report Type: Spontaneous
  Country: US (occurrence: US)
  Receive Date: 20131121
  Receipt Date: 20131121
  Transmission Date: 20140711
  Serious: No
  Sender: FDA-Public Use
  Company Number: US-PFIZER INC-2013331541

PATIENT
  Age: 53 Year
  Sex: Female
  Weight: 70.3 kg

DRUGS (4)
  1. LYRICA [Suspect]
     Indication: FIBROMYALGIA
     Dosage: 75 MG, 2X/DAY
     Dates: start: 20131001, end: 201310
  2. LYRICA [Suspect]
     Dosage: 75 MG, 1X/DAY
     Dates: start: 201310, end: 2013
  3. LYRICA [Suspect]
     Dosage: 75 MG, 2X/DAY
     Dates: start: 2013, end: 2013
  4. LYRICA [Suspect]
     Dosage: 75 MG, 1X/DAY
     Dates: start: 2013

REACTIONS (1)
  - Dizziness [Recovered/Resolved]
